FAERS Safety Report 19613635 (Version 1)
Quarter: 2021Q3

REPORT INFORMATION
  Report Type: Spontaneous
  Country: US (occurrence: US)
  Receive Date: 20210727
  Receipt Date: 20210727
  Transmission Date: 20211014
  Serious: No
  Sender: FDA-Public Use
  Company Number: None

PATIENT
  Age: 68 Year
  Sex: Female
  Weight: 54.45 kg

DRUGS (9)
  1. SLOW MAG [Concomitant]
     Active Substance: MAGNESIUM CHLORIDE
  2. HYDROCHLOROTHIAZIDE. [Concomitant]
     Active Substance: HYDROCHLOROTHIAZIDE
  3. LUMIGAN [Suspect]
     Active Substance: BIMATOPROST
     Indication: GLAUCOMA
     Dosage: ?          QUANTITY:1 DROP(S);?
     Route: 047
     Dates: start: 20210715, end: 20210722
  4. LOVASTATIN. [Concomitant]
     Active Substance: LOVASTATIN
  5. AMLODIPINE BESYLATE. [Concomitant]
     Active Substance: AMLODIPINE BESYLATE
  6. VITAMIN D [Concomitant]
     Active Substance: VITAMIN D NOS
  7. CLINDAMYCIN HCL [Concomitant]
     Active Substance: CLINDAMYCIN HYDROCHLORIDE
  8. PREMARIN [Concomitant]
     Active Substance: ESTROGENS, CONJUGATED
  9. PRESERVISION [Concomitant]
     Active Substance: MINERALS\VITAMINS

REACTIONS (4)
  - Swelling [None]
  - Dry eye [None]
  - Inflammation [None]
  - Hypersensitivity [None]

NARRATIVE: CASE EVENT DATE: 20210726
